FAERS Safety Report 7466408-5 (Version None)
Quarter: 2011Q2

REPORT INFORMATION
  Report Type: 
  Country: None (occurrence: None)
  Receive Date: 20110509
  Receipt Date: 20110506
  Transmission Date: 20111010
  Serious: No
  Sender: FDA-Public Use
  Company Number: US-PFIZER INC-2011085789

PATIENT
  Sex: Female
  Weight: 62.585 kg

DRUGS (1)
  1. ADVIL PM [Suspect]
     Indication: SLEEP DISORDER
     Dosage: 38/200 MG, DAILY
     Route: 048
     Dates: start: 20110418

REACTIONS (3)
  - TENSION [None]
  - POOR QUALITY SLEEP [None]
  - MALAISE [None]
